FAERS Safety Report 18946405 (Version 3)
Quarter: 2021Q1

REPORT INFORMATION
  Report Type: Spontaneous
  Country: TR (occurrence: TR)
  Receive Date: 20210226
  Receipt Date: 20210310
  Transmission Date: 20210420
  Serious: Yes (Death, Life-Threatening, Hospitalization, Other)
  Sender: FDA-Public Use
  Company Number: TR-SA-2021SA065974

PATIENT
  Age: 43 Year
  Sex: Female
  Weight: 78 kg

DRUGS (8)
  1. OXALIPLATIN. [Suspect]
     Active Substance: OXALIPLATIN
     Indication: ADENOCARCINOMA PANCREAS
     Dosage: UNK, QOW
     Route: 042
     Dates: start: 201902, end: 201902
  2. FLUOROURACIL. [Suspect]
     Active Substance: FLUOROURACIL
     Indication: ADENOCARCINOMA PANCREAS
     Dosage: UNK UNK, QOW
     Route: 042
     Dates: start: 201902, end: 201902
  3. IRINOTECAN [Suspect]
     Active Substance: IRINOTECAN
     Dosage: UNK UNK, QOW
     Route: 042
     Dates: start: 201905, end: 201905
  4. OXALIPLATIN. [Suspect]
     Active Substance: OXALIPLATIN
     Dosage: UNK, QOW
     Route: 042
     Dates: start: 201905, end: 201905
  5. FOLINIC ACID [Suspect]
     Active Substance: LEUCOVORIN
     Dosage: UNK UNK, QOW
     Route: 042
     Dates: start: 201905, end: 201905
  6. IRINOTECAN [Suspect]
     Active Substance: IRINOTECAN
     Indication: ADENOCARCINOMA PANCREAS
     Dosage: UNK UNK, QOW
     Route: 042
     Dates: start: 201902, end: 201902
  7. FLUOROURACIL. [Suspect]
     Active Substance: FLUOROURACIL
     Dosage: UNK UNK, QOW
     Route: 042
     Dates: start: 201905, end: 201905
  8. FOLINIC ACID [Suspect]
     Active Substance: LEUCOVORIN
     Indication: ADENOCARCINOMA PANCREAS
     Dosage: UNK UNK, QOW
     Route: 042
     Dates: start: 201902, end: 201902

REACTIONS (13)
  - Blood alkaline phosphatase increased [Fatal]
  - Neurotoxicity [Unknown]
  - Toxicity to various agents [Fatal]
  - Steatohepatitis [Fatal]
  - Septic shock [Fatal]
  - Thrombocytopenia [Unknown]
  - Hepatic steatosis [Fatal]
  - Anaemia [Unknown]
  - Gamma-glutamyltransferase increased [Fatal]
  - Hepatic failure [Fatal]
  - Nonalcoholic fatty liver disease [Fatal]
  - Multiple organ dysfunction syndrome [Fatal]
  - Blood bilirubin increased [Fatal]

NARRATIVE: CASE EVENT DATE: 201905
